FAERS Safety Report 5616444-6 (Version None)
Quarter: 2008Q1

REPORT INFORMATION
  Report Type: 
  Country: None (occurrence: None)
  Receive Date: 20080207
  Receipt Date: 20080128
  Transmission Date: 20080703
  Serious: Yes (Hospitalization, Other)
  Sender: FDA-Public Use
  Company Number: AT-ELI_LILLY_AND_COMPANY-AT200801006555

PATIENT
  Age: 34 Year
  Sex: Male
  Weight: 74 kg

DRUGS (4)
  1. OLANZAPINE [Suspect]
     Indication: SCHIZOPHRENIA, PARANOID TYPE
     Dosage: 20 MG, DAILY (1/D)
     Route: 048
     Dates: start: 20051105
  2. RISPERIDONE [Concomitant]
     Dosage: 8 MG, DAILY (1/D)
     Dates: start: 20050101
  3. TRUXAL [Concomitant]
     Dosage: 100 MG, DAILY (1/D)
     Dates: start: 20070410, end: 20070925
  4. TRUXAL [Concomitant]
     Dosage: 150 MG, DAILY (1/D)
     Dates: start: 20070926

REACTIONS (3)
  - HOSPITALISATION [None]
  - HYPERLIPIDAEMIA [None]
  - WEIGHT INCREASED [None]
